FAERS Safety Report 7151122-6 (Version None)
Quarter: 2010Q4

REPORT INFORMATION
  Report Type: 
  Country: None (occurrence: None)
  Receive Date: 20101210
  Receipt Date: 20101129
  Transmission Date: 20110411
  Serious: Yes (Other)
  Sender: FDA-Public Use
  Company Number: JP-PFIZER INC-2010168440

PATIENT
  Age: 8 Year
  Sex: Female

DRUGS (3)
  1. CAMPTOSAR [Suspect]
     Indication: ALVEOLAR SOFT PART SARCOMA
     Dosage: 100 MG/M2, UNK
     Route: 041
     Dates: start: 20080117, end: 20080119
  2. CARBOPLATIN [Suspect]
     Indication: ALVEOLAR SOFT PART SARCOMA
     Dosage: 80 MG/M2, UNK
     Route: 041
     Dates: start: 20080117, end: 20080119
  3. ETOPOSIDE [Suspect]
     Indication: ALVEOLAR SOFT PART SARCOMA
     Dosage: 100 MG/M2, UNK
     Route: 041
     Dates: start: 20080117, end: 20080119

REACTIONS (1)
  - HEPATIC FUNCTION ABNORMAL [None]
